FAERS Safety Report 11128795 (Version 1)
Quarter: 2015Q2

REPORT INFORMATION
  Report Type: Spontaneous
  Country: US (occurrence: None)
  Receive Date: 20150520
  Receipt Date: 20150520
  Transmission Date: 20150821
  Serious: No
  Sender: FDA-Public Use
  Company Number: None

PATIENT
  Age: 62 Year

DRUGS (14)
  1. FISH OIL [Concomitant]
     Active Substance: FISH OIL
  2. ATENOLOL. [Concomitant]
     Active Substance: ATENOLOL
  3. HCTZ [Concomitant]
     Active Substance: HYDROCHLOROTHIAZIDE
  4. VITAMIN B12, B1 [Concomitant]
  5. CENTRUM WOMEN^S VITAMIN [Concomitant]
  6. CLARITHROMYCIN EXTENDED RELEASE [Suspect]
     Active Substance: CLARITHROMYCIN
     Indication: SINUSITIS
     Dosage: ER
     Dates: start: 20150327, end: 20150404
  7. HYDROCHLOROQUININE [Concomitant]
  8. CALCIUM [Concomitant]
     Active Substance: CALCIUM
  9. FAMOTIDINE. [Concomitant]
     Active Substance: FAMOTIDINE
  10. NASONEX [Concomitant]
     Active Substance: MOMETASONE FUROATE
  11. ALIGN [Concomitant]
     Active Substance: BIFIDOBACTERIUM LONGUM SUBSP. INFANTIS
  12. LOVASTATIN. [Concomitant]
     Active Substance: LOVASTATIN
  13. PREMARIN [Concomitant]
     Active Substance: ESTROGENS, CONJUGATED
  14. GLUCOSAMINE/CHONDRITIN [Concomitant]

REACTIONS (4)
  - Staring [None]
  - Arachnophobia [None]
  - Hallucination, visual [None]
  - Anxiety [None]
